FAERS Safety Report 14027581 (Version 4)
Quarter: 2018Q3

REPORT INFORMATION
  Report Type: Spontaneous
  Country: US (occurrence: US)
  Receive Date: 20170929
  Receipt Date: 20180704
  Transmission Date: 20181010
  Serious: No
  Sender: FDA-Public Use
  Company Number: US-PFIZER INC-2017417726

PATIENT
  Age: 83 Year
  Sex: Female
  Weight: 53.61 kg

DRUGS (12)
  1. OMEPRAZOLE. [Concomitant]
     Active Substance: OMEPRAZOLE
     Indication: GASTRIC PH DECREASED
     Dosage: 4 MG, 1X/DAY, (HAD BEEN TAKEN FOR YEARS)
  2. FISH OIL [Concomitant]
     Active Substance: FISH OIL
     Dosage: 1 DF, DAILY, (HAD BEEN TAKEN FOR MAYBE A YEAR, RECOMMENDED BY HER OPHTHALMOLOGIST)
  3. IBRANCE [Suspect]
     Active Substance: PALBOCICLIB
     Indication: NEOPLASM MALIGNANT
     Dosage: 100 MG, ONCE A DAY
     Dates: start: 201707
  4. IBRANCE [Suspect]
     Active Substance: PALBOCICLIB
     Dosage: 75 MG, ONCE A DAY (FOR 21 DAYS)
     Route: 048
  5. ANASTROZOLE. [Concomitant]
     Active Substance: ANASTROZOLE
     Indication: OESTROGEN THERAPY
     Dosage: 1 DF, DAILY
     Dates: start: 201705
  6. DOK [Concomitant]
     Active Substance: DOCUSATE SODIUM
     Indication: FAECES HARD
     Dosage: 100 MG, 2X/DAY, (STARTED IN THE LAST COUPLE OF MONTHS)
  7. ONE?A?DAY NOS [Concomitant]
     Active Substance: MINERALS\VITAMINS
     Indication: VITAMIN SUPPLEMENTATION
     Dosage: 1 DF, DAILY, (HAD BEEN TAKEN FOR 1 TO 2 YEARS)
  8. CALCIUM [Concomitant]
     Active Substance: CALCIUM
     Indication: BONE DISORDER
     Dosage: 2 DF, 1X/DAY, (HAD BEEN TAKEN FOR AROUND 10 YEARS)
  9. LEVOTHYROXINE. [Concomitant]
     Active Substance: LEVOTHYROXINE
     Indication: THYROID DISORDER
     Dosage: 0.112 MG, 1X/DAY (HAD BEEN TAKEN FOR YEARS)
  10. MELOXICAM. [Concomitant]
     Active Substance: MELOXICAM
     Indication: ARTHRITIS
     Dosage: 7.5 MG, 1X/DAY, (HAD BEEN TAKEN FOR YEARS)
  11. MSM WITH GLUCOSAMINE [Concomitant]
     Indication: ARTHROPATHY
     Dosage: 1000 MG, 1X/DAY, (HAD BEEN TAKEN FOR MAYBE 15 YEARS)
  12. IBRANCE [Suspect]
     Active Substance: PALBOCICLIB
     Indication: BREAST CANCER METASTATIC
     Dosage: 125 MG, ONCE A DAY
     Dates: start: 201705

REACTIONS (4)
  - Product use in unapproved indication [Unknown]
  - White blood cell count decreased [Recovered/Resolved]
  - Confusional state [Unknown]
  - Inappropriate schedule of drug administration [Unknown]

NARRATIVE: CASE EVENT DATE: 201705
